FAERS Safety Report 7077614-6 (Version None)
Quarter: 2010Q4

REPORT INFORMATION
  Report Type: 
  Country: None (occurrence: None)
  Receive Date: 20101021
  Receipt Date: 20101006
  Transmission Date: 20110411
  Serious: Yes (Hospitalization, Other)
  Sender: FDA-Public Use
  Company Number: 015271

PATIENT
  Sex: Male

DRUGS (12)
  1. CERTOLIZUMAB PEGOL (CERTOLIZUMAB PEGOL) [Suspect]
     Indication: RHEUMATOID ARTHRITIS
     Dosage: (400 MG 1X/MONTH SUBCUTANEOUS)
     Route: 058
     Dates: start: 20030826, end: 20091212
  2. METHOTREXATE [Concomitant]
  3. FOLIC ACID [Concomitant]
  4. RAMIPRIL [Concomitant]
  5. ATENOLOL [Concomitant]
  6. ATORVASTATIN [Concomitant]
  7. METFORMIN HCL [Concomitant]
  8. FLUCLOXACILLIN [Concomitant]
  9. PENICILLIN V /00001801/ [Concomitant]
  10. CLARITHROMYCIN [Concomitant]
  11. CLINDAMYCIN [Concomitant]
  12. ERYTHROMYCIN [Concomitant]

REACTIONS (5)
  - BLOOD SODIUM DECREASED [None]
  - CELLULITIS [None]
  - DRUG EFFECT DECREASED [None]
  - MYOCARDIAL ISCHAEMIA [None]
  - SYNOVIAL RUPTURE [None]
